APPROVED DRUG PRODUCT: CEFOTAXIME SODIUM
Active Ingredient: CEFOTAXIME SODIUM
Strength: EQ 1GM BASE/VIAL
Dosage Form/Route: INJECTABLE;INJECTION
Application: A065124 | Product #002
Applicant: LUPIN LTD
Approved: Sep 24, 2003 | RLD: No | RS: No | Type: DISCN